FAERS Safety Report 11420819 (Version 3)
Quarter: 2015Q3

REPORT INFORMATION
  Report Type: Spontaneous
  Country: US (occurrence: US)
  Receive Date: 20150826
  Receipt Date: 20150925
  Transmission Date: 20151125
  Serious: Yes (Other)
  Sender: FDA-Public Use
  Company Number: US-ASTRAZENECA-2015SE80593

PATIENT
  Age: 821 Month
  Sex: Male
  Weight: 90.7 kg

DRUGS (16)
  1. VITAMIN D [Concomitant]
     Active Substance: CHOLECALCIFEROL
     Dosage: 1000 UNIT TABLET 1 TABLET ONCE A DAY
  2. CRESTOR [Suspect]
     Active Substance: ROSUVASTATIN CALCIUM
     Indication: VASCULAR GRAFT
     Route: 048
     Dates: start: 2011, end: 20150731
  3. CENTRUM MULTIVITES [Concomitant]
  4. VITAMIN C [Concomitant]
     Active Substance: ASCORBIC ACID
  5. FOLTX [Concomitant]
     Active Substance: CYANOCOBALAMIN CO-57\FOLIC ACID\PYRIDOXINE HYDROCHLORIDE
     Dates: start: 200312
  6. ASPIR 81 [Concomitant]
  7. ZOLPIDEM TARTRATE. [Concomitant]
     Active Substance: ZOLPIDEM TARTRATE
  8. COD-LIVER OIL [Concomitant]
     Active Substance: FISH OIL
     Dates: start: 2011
  9. ECOTRIN [Concomitant]
     Active Substance: ASPIRIN
     Dates: start: 200312
  10. SLOW NIACIN [Concomitant]
     Dates: start: 200312
  11. SYNTHROID [Concomitant]
     Active Substance: LEVOTHYROXINE SODIUM
     Dosage: 100 MCG 1 TABLET ON AN EMPTY STOMACH IN THE MORNING ONCE A DAY
  12. FLAXSEED [Concomitant]
     Active Substance: FLAX SEED
     Dosage: DAILY
     Dates: start: 2004
  13. CELEBREX [Concomitant]
     Active Substance: CELECOXIB
  14. NEURONTIN [Concomitant]
     Active Substance: GABAPENTIN
     Dosage: 3 TIMES PER DAY
  15. COENZYME Q10 [Concomitant]
     Active Substance: UBIDECARENONE
  16. METOPROLOL SUCCINATE. [Suspect]
     Active Substance: METOPROLOL SUCCINATE
     Indication: CARDIAC MURMUR
     Route: 048
     Dates: start: 200312

REACTIONS (30)
  - Back pain [Not Recovered/Not Resolved]
  - Blood creatinine decreased [Unknown]
  - Eosinophil count increased [Unknown]
  - Cardiomegaly [Unknown]
  - Chest pain [Unknown]
  - Intentional product misuse [Unknown]
  - Angina pectoris [Unknown]
  - Spinal column stenosis [Unknown]
  - Electrocardiogram abnormal [Unknown]
  - Mitral valve disease [Unknown]
  - Cholelithiasis [Unknown]
  - Platelet count decreased [Unknown]
  - Hypothyroidism [Unknown]
  - Dyspnoea [Unknown]
  - Pain [Unknown]
  - Product use issue [Unknown]
  - Vitamin D decreased [Unknown]
  - Musculoskeletal stiffness [Not Recovered/Not Resolved]
  - Sacroiliitis [Unknown]
  - Blood urea nitrogen/creatinine ratio increased [Unknown]
  - Blood glucose increased [Unknown]
  - Left ventricular hypertrophy [Unknown]
  - Arthropathy [Unknown]
  - Hypertensive heart disease [Unknown]
  - Polyarthritis [Unknown]
  - Gait disturbance [Recovered/Resolved]
  - Nerve injury [Unknown]
  - Hypertension [Unknown]
  - Hyperlipidaemia [Unknown]
  - Tenderness [Unknown]

NARRATIVE: CASE EVENT DATE: 200312
